FAERS Safety Report 25083835 (Version 1)
Quarter: 2025Q1

REPORT INFORMATION
  Report Type: Report from Study
  Country: US (occurrence: US)
  Receive Date: 20250317
  Receipt Date: 20250317
  Transmission Date: 20250409
  Serious: Yes (Other)
  Sender: CSL BEHRING
  Company Number: US-BEH-2025195492

PATIENT
  Age: 30 Year
  Sex: Female
  Weight: 78.1 kg

DRUGS (1)
  1. HIZENTRA [Suspect]
     Active Substance: HUMAN IMMUNOGLOBULIN G
     Route: 065
     Dates: start: 20250105, end: 20250112

REACTIONS (2)
  - Nephrolithiasis [Unknown]
  - Renal stone removal [Unknown]

NARRATIVE: CASE EVENT DATE: 20250109
